FAERS Safety Report 19149735 (Version 2)
Quarter: 2021Q2

REPORT INFORMATION
  Report Type: Other
  Country: SK (occurrence: SK)
  Receive Date: 20210416
  Receipt Date: 20210420
  Transmission Date: 20210717
  Serious: Yes (Hospitalization)
  Sender: FDA-Public Use
  Company Number: SK-US-PROVELL PHARMACEUTICALS LLC-9229041

PATIENT
  Age: 7 Year
  Sex: Male

DRUGS (1)
  1. EUTHYROX [Suspect]
     Active Substance: LEVOTHYROXINE SODIUM
     Indication: THYROID DISORDER

REACTIONS (7)
  - Hyperthyroidism [Recovering/Resolving]
  - Low birth weight baby [Unknown]
  - Hyperglycaemia [Recovering/Resolving]
  - Foetal exposure during pregnancy [Recovered/Resolved]
  - Anti-GAD antibody [Unknown]
  - Cardiac murmur [Unknown]
  - Premature baby [Unknown]
